FAERS Safety Report 13577238 (Version 1)
Quarter: 2017Q2

REPORT INFORMATION
  Report Type: Spontaneous
  Country: SE (occurrence: SE)
  Receive Date: 20170524
  Receipt Date: 20170524
  Transmission Date: 20170830
  Serious: Yes (Hospitalization)
  Sender: FDA-Public Use
  Company Number: SE-TEVA-578355ISR

PATIENT
  Age: 67 Year
  Sex: Male

DRUGS (7)
  1. METFORMIN [Suspect]
     Active Substance: METFORMIN HYDROCHLORIDE
     Indication: TYPE 2 DIABETES MELLITUS
     Dosage: 1500MG/DAG
     Route: 048
     Dates: start: 20141103, end: 20150419
  2. ASACOL [Suspect]
     Active Substance: MESALAMINE
     Indication: COLITIS ULCERATIVE
     Dosage: 4800MG/DAG
     Route: 048
     Dates: start: 20110902
  3. METOPROLOL ORION [Concomitant]
     Active Substance: METOPROLOL
  4. MINDIAB [Concomitant]
     Active Substance: GLIPIZIDE
  5. PREDNISOLON ALTERNOVA [Concomitant]
     Active Substance: PREDNISOLONE
  6. PURINETHOL [Suspect]
     Active Substance: MERCAPTOPURINE
     Indication: COLITIS ULCERATIVE
     Dosage: 100MG/DAG
     Route: 048
     Dates: start: 20120530, end: 20150415
  7. SIMVASTATIN ARROW [Concomitant]
     Active Substance: SIMVASTATIN

REACTIONS (4)
  - Blood bilirubin increased [Recovered/Resolved]
  - Fatigue [Recovered/Resolved]
  - Transaminases increased [Recovered/Resolved]
  - Hepatic function abnormal [Recovered/Resolved]

NARRATIVE: CASE EVENT DATE: 20150315
